FAERS Safety Report 8106353-5 (Version None)
Quarter: 2012Q1

REPORT INFORMATION
  Report Type: 
  Country: None (occurrence: None)
  Receive Date: 20120130
  Receipt Date: 20120117
  Transmission Date: 20120608
  Serious: Yes (Death)
  Sender: FDA-Public Use
  Company Number: FK201200114

PATIENT
  Age: 27 Year
  Sex: Female

DRUGS (3)
  1. MORPHINE SULFATE [Suspect]
     Indication: INTENTIONAL DRUG MISUSE
     Dosage: PARENTERAL
     Route: 051
  2. CITALOPRAM HYDROBROMIDE [Suspect]
     Indication: INTENTIONAL DRUG MISUSE
     Dosage: PARENTERAL
     Route: 051
  3. DIPHENHYDRAMINE HCL [Suspect]
     Indication: INTENTIONAL DRUG MISUSE
     Dosage: PARENTERAL

REACTIONS (2)
  - DRUG ABUSE [None]
  - INTENTIONAL DRUG MISUSE [None]
